FAERS Safety Report 9745140 (Version 1)
Quarter: 2013Q4

REPORT INFORMATION
  Report Type: Report from Study
  Country: GB (occurrence: GB)
  Receive Date: 20131211
  Receipt Date: 20131211
  Transmission Date: 20140711
  Serious: Yes (Hospitalization, Other)
  Sender: FDA-Public Use
  Company Number: GB-ROCHE-1312734

PATIENT
  Sex: Female
  Weight: 66 kg

DRUGS (19)
  1. RITUXIMAB [Suspect]
     Indication: PSORIATIC ARTHROPATHY
     Route: 065
  2. DICLOFENAC [Concomitant]
  3. CHLORPHENAMINE [Concomitant]
  4. ADCAL-D3 [Concomitant]
     Dosage: BID
     Route: 048
  5. AMITRIPTYLINE [Concomitant]
     Dosage: ON : EVERY NIGHT
     Route: 048
  6. PREDNISOLONE [Concomitant]
     Dosage: OM: EVERY MORNING
     Route: 048
  7. PREDNISOLONE [Concomitant]
     Route: 048
  8. CITALOPRAM [Concomitant]
     Dosage: OM : EVERY MORNING
     Route: 048
  9. FERROUS FUMARATE [Concomitant]
     Dosage: TDS: THREE TIMES A DAY
     Route: 048
  10. FOLIC ACID [Concomitant]
     Dosage: EVERY FRIDAY
     Route: 048
  11. IBANDRONIC ACID [Concomitant]
     Dosage: AS DIRECTED TAKEN ON THE FIRST OF EVERY MONTH
     Route: 048
  12. LANSOPRAZOLE [Concomitant]
     Dosage: EVERY MORNING
     Route: 048
  13. LORATADINE [Concomitant]
     Dosage: EVERY MORNING
     Route: 048
  14. METOCLOPRAMIDE [Concomitant]
     Dosage: THREE TIMES A DAY
     Route: 048
  15. PARACETAMOL [Concomitant]
     Dosage: QDS PRN
     Route: 048
  16. CODEINE PHOSPHATE [Concomitant]
     Dosage: QDS PRN
     Route: 048
  17. SIMVASTATIN [Concomitant]
     Dosage: EVERY NOIGHT
     Route: 048
  18. ZOPICLONE [Concomitant]
     Dosage: EVERY NIGHT
     Route: 048
  19. CARBIMAZOLE [Concomitant]

REACTIONS (2)
  - Alanine aminotransferase increased [Unknown]
  - Rheumatoid arthritis [Unknown]
